FAERS Safety Report 18665723 (Version 2)
Quarter: 2020Q4

REPORT INFORMATION
  Report Type: Spontaneous
  Country: BG (occurrence: BG)
  Receive Date: 20201226
  Receipt Date: 20201228
  Transmission Date: 20210114
  Serious: Yes (Other)
  Sender: FDA-Public Use
  Company Number: BG-JNJFOC-20201238591

PATIENT
  Age: 30 Year
  Sex: Male

DRUGS (4)
  1. DABIGATRAN [Interacting]
     Active Substance: DABIGATRAN
     Indication: PELVIC VENOUS THROMBOSIS
     Dosage: 300 MG, QD
     Route: 065
  2. RIVAROXABAN [Suspect]
     Active Substance: RIVAROXABAN
     Indication: PELVIC VENOUS THROMBOSIS
     Dosage: 15 MG BID
     Route: 048
  3. RIVAROXABAN [Interacting]
     Active Substance: RIVAROXABAN
     Dosage: 20 MG, QD
     Route: 048
  4. SODIUM VALPROATE [Interacting]
     Active Substance: VALPROATE SODIUM
     Indication: POST-TRAUMATIC EPILEPSY
     Dosage: 1000 MG
     Route: 065

REACTIONS (4)
  - Coagulation time shortened [Unknown]
  - Anticoagulation drug level decreased [Unknown]
  - Inhibitory drug interaction [Unknown]
  - Drug ineffective [Unknown]
